FAERS Safety Report 5194469-5 (Version None)
Quarter: 2006Q4

REPORT INFORMATION
  Report Type: 
  Country: None (occurrence: None)
  Receive Date: 20061221
  Receipt Date: 20060420
  Transmission Date: 20070319
  Serious: Yes (Other)
  Sender: FDA-Public Use
  Company Number: PHO-2006-048

PATIENT
  Age: 73 Year
  Sex: Male

DRUGS (1)
  1. PHOTOFRIN [Suspect]
     Indication: TRACHEAL CANCER
     Dosage: UNSPECIFIED
     Dates: start: 20030818, end: 20060823

REACTIONS (1)
  - STRIDOR [None]
